FAERS Safety Report 16555043 (Version 1)
Quarter: 2019Q3

REPORT INFORMATION
  Report Type: Report from Study
  Country: IT (occurrence: IT)
  Receive Date: 20190710
  Receipt Date: 20190710
  Transmission Date: 20191004
  Serious: Yes (Other)
  Sender: FDA-Public Use
  Company Number: IT-TEVA-2019-IT-1074384

PATIENT
  Age: 88 Year
  Sex: Male

DRUGS (6)
  1. ZOLOFT [Interacting]
     Active Substance: SERTRALINE HYDROCHLORIDE
  2. DEPAKIN [Concomitant]
     Active Substance: VALPROATE SODIUM
  3. IBUSTRIN [Concomitant]
  4. EXELON [Concomitant]
     Active Substance: RIVASTIGMINE TARTRATE
  5. RYTMONORM [Suspect]
     Active Substance: PROPAFENONE
  6. OMNIC [Concomitant]
     Active Substance: TAMSULOSIN HYDROCHLORIDE

REACTIONS (4)
  - Supraventricular tachycardia [Recovering/Resolving]
  - Dyspnoea [Recovering/Resolving]
  - Loss of consciousness [Recovering/Resolving]
  - Drug interaction [Recovering/Resolving]

NARRATIVE: CASE EVENT DATE: 20190107
